FAERS Safety Report 12985728 (Version 2)
Quarter: 2016Q4

REPORT INFORMATION
  Report Type: Spontaneous
  Country: US (occurrence: US)
  Receive Date: 20161130
  Receipt Date: 20161208
  Transmission Date: 20170207
  Serious: Yes (Death)
  Sender: FDA-Public Use
  Company Number: US-ROCHE-1861061

PATIENT
  Age: 37 Year
  Sex: Male

DRUGS (1)
  1. ACTILYSE [Suspect]
     Active Substance: ALTEPLASE
     Indication: PRODUCT USED FOR UNKNOWN INDICATION
     Dosage: 1 MG/HOUR, WITH 80% OF THE DOSE INFUSED THROUGH MICROMEWI INFUSION CATHETER AND 20% IF THE DOSE INFU
     Route: 065

REACTIONS (1)
  - Angiosarcoma metastatic [Fatal]
